FAERS Safety Report 10180935 (Version 1)
Quarter: 2014Q2

REPORT INFORMATION
  Report Type: Spontaneous
  Country: US (occurrence: US)
  Receive Date: 20140519
  Receipt Date: 20140519
  Transmission Date: 20141212
  Serious: No
  Sender: FDA-Public Use
  Company Number: US-AMGEN INC.-USASP2014003809

PATIENT
  Age: 83 Year
  Sex: Female

DRUGS (2)
  1. PROLIA [Suspect]
     Indication: PRODUCT USED FOR UNKNOWN INDICATION
     Dosage: UNK
     Route: 065
     Dates: start: 201311
  2. ADVIL                              /00044201/ [Concomitant]
     Dosage: 400 MG, UNK

REACTIONS (2)
  - Joint effusion [Not Recovered/Not Resolved]
  - Muscular weakness [Not Recovered/Not Resolved]
